FAERS Safety Report 13851812 (Version 1)
Quarter: 2017Q3

REPORT INFORMATION
  Report Type: Report from Study
  Country: PL (occurrence: PL)
  Receive Date: 20170809
  Receipt Date: 20170809
  Transmission Date: 20171127
  Serious: Yes (Hospitalization)
  Sender: FDA-Public Use
  Company Number: PL-LEO PHARMA-290192

PATIENT
  Age: 15 Year
  Sex: Male
  Weight: 59.8 kg

DRUGS (7)
  1. HITAXA [Concomitant]
     Indication: DERMATITIS ATOPIC
     Dosage: UNK, UNKNOWN FREQ.
     Route: 065
     Dates: start: 2016
  2. HITAXA [Concomitant]
     Indication: HYPERSENSITIVITY
  3. PROTOPIC [Suspect]
     Active Substance: TACROLIMUS
     Indication: DERMATITIS ATOPIC
     Dosage: 0.03 %, ONCE WEEKLY
     Route: 061
     Dates: start: 20080606, end: 2015
  4. ZYX                                /00052302/ [Concomitant]
     Indication: DERMATITIS ATOPIC
     Dosage: UNK UNK, UNKNOWN FREQ.
     Route: 065
  5. MILUKANTE [Concomitant]
     Indication: DERMATITIS ATOPIC
     Dosage: UNK UNK, UNKNOWN FREQ.
     Route: 065
  6. ALVESCO [Concomitant]
     Active Substance: CICLESONIDE
     Indication: ASTHMA
     Dosage: 0.16 MG, UNKNOWN FREQ.
     Route: 065
     Dates: start: 2015
  7. MOMETASONE [Concomitant]
     Active Substance: MOMETASONE
     Indication: HYPERSENSITIVITY
     Route: 065
     Dates: start: 2015

REACTIONS (1)
  - Benign bone neoplasm [Recovered/Resolved]

NARRATIVE: CASE EVENT DATE: 20170109
